FAERS Safety Report 6962243-2 (Version None)
Quarter: 2010Q3

REPORT INFORMATION
  Report Type: 
  Country: None (occurrence: None)
  Receive Date: 20100901
  Receipt Date: 20100901
  Transmission Date: 20110219
  Serious: Yes (Hospitalization)
  Sender: FDA-Public Use
  Company Number: None

PATIENT
  Sex: Female
  Weight: 51 kg

DRUGS (2)
  1. AZACITIDINE [Suspect]
     Indication: ACUTE MYELOID LEUKAEMIA
     Dosage: 25MG/M2 DAYS 1-5/IV Q28D
     Route: 042
     Dates: start: 20100802
  2. REVLIMID [Suspect]
     Dosage: 50MG/QD FOR 28 DAYS/PO
     Route: 048

REACTIONS (4)
  - FATIGUE [None]
  - HYPOTENSION [None]
  - PRODUCTIVE COUGH [None]
  - SEPSIS [None]
